FAERS Safety Report 7763187-9 (Version None)
Quarter: 2011Q3

REPORT INFORMATION
  Report Type: 
  Country: None (occurrence: None)
  Receive Date: 20110920
  Receipt Date: 20110913
  Transmission Date: 20111222
  Serious: Yes (Other)
  Sender: FDA-Public Use
  Company Number: PHEH2009US02711

PATIENT
  Sex: Female

DRUGS (5)
  1. AMITRIPTYLINE HCL [Concomitant]
     Dosage: 150 MG, QD
  2. AREDIA [Suspect]
  3. DILANTIN [Concomitant]
     Dosage: 130 MG, BID
  4. PREVACID [Concomitant]
     Dosage: 15 MG, QD
  5. ZOMETA [Suspect]
     Dosage: 4 MG, QMO

REACTIONS (15)
  - DEFORMITY [None]
  - ANXIETY DISORDER [None]
  - PAIN [None]
  - CHOLESTEATOMA [None]
  - INFECTION [None]
  - GASTROOESOPHAGEAL REFLUX DISEASE [None]
  - OSTEOPOROSIS [None]
  - ENDOMETRIOSIS [None]
  - CONVULSION [None]
  - HAEMORRHOIDS [None]
  - GAMMA-GLUTAMYLTRANSFERASE INCREASED [None]
  - OSTEONECROSIS OF JAW [None]
  - BONE PAIN [None]
  - TRYPTASE INCREASED [None]
  - ARTHRALGIA [None]
